FAERS Safety Report 7355920-5 (Version None)
Quarter: 2011Q1

REPORT INFORMATION
  Report Type: 
  Country: None (occurrence: None)
  Receive Date: 20110311
  Receipt Date: 20110311
  Transmission Date: 20110831
  Serious: No
  Sender: FDA-Public Use
  Company Number: None

PATIENT
  Age: 29 Year
  Sex: Female

DRUGS (3)
  1. DEPAKOTE [Suspect]
     Dates: start: 20070623, end: 20070728
  2. SEROQUEL [Suspect]
     Dates: start: 20070623, end: 20070728
  3. PROTONIX [Concomitant]

REACTIONS (5)
  - INTERNATIONAL NORMALISED RATIO INCREASED [None]
  - HEPATIC NECROSIS [None]
  - ACUTE HEPATIC FAILURE [None]
  - LIVER TRANSPLANT [None]
  - TOXICITY TO VARIOUS AGENTS [None]
